FAERS Safety Report 23258164 (Version 1)
Quarter: 2023Q4

REPORT INFORMATION
  Report Type: Spontaneous
  Country: CN (occurrence: CN)
  Receive Date: 20231204
  Receipt Date: 20231204
  Transmission Date: 20240110
  Serious: Yes (Hospitalization, Other)
  Sender: FDA-Public Use
  Company Number: CN-BAYER-2023A171789

PATIENT
  Age: 80 Year
  Sex: Female

DRUGS (1)
  1. AVELOX [Suspect]
     Active Substance: MOXIFLOXACIN HYDROCHLORIDE
     Indication: Bronchitis
     Dosage: 0.4 G, QD
     Route: 048
     Dates: start: 20230930, end: 20230930

REACTIONS (5)
  - Syncope [Recovered/Resolved]
  - Epilepsy [Recovered/Resolved]
  - Depressed level of consciousness [Recovered/Resolved]
  - Muscle rigidity [Recovered/Resolved]
  - Eye movement disorder [Recovered/Resolved]

NARRATIVE: CASE EVENT DATE: 20230930
